FAERS Safety Report 24622921 (Version 1)
Quarter: 2024Q4

REPORT INFORMATION
  Report Type: Spontaneous
  Country: SG (occurrence: SG)
  Receive Date: 20241115
  Receipt Date: 20241115
  Transmission Date: 20250114
  Serious: Yes (Other)
  Sender: ASTELLAS
  Company Number: SG-ASTELLAS-2024-AER-018294

PATIENT
  Age: 42 Year
  Sex: Male

DRUGS (6)
  1. GILTERITINIB [Suspect]
     Active Substance: GILTERITINIB
     Indication: Product used for unknown indication
     Route: 065
  2. GILTERITINIB [Suspect]
     Active Substance: GILTERITINIB
     Dosage: 40MG COMMENCED ON D+56 (REDUCED DOSE)
     Route: 065
  3. GILTERITINIB [Suspect]
     Active Substance: GILTERITINIB
     Dosage: ON D+77
     Route: 065
  4. PROGRAF [Suspect]
     Active Substance: TACROLIMUS
     Indication: Product used for unknown indication
     Dosage: TAPERED FROM D+84
     Route: 065
  5. MIDOSTAURIN [Concomitant]
     Active Substance: MIDOSTAURIN
     Indication: Product used for unknown indication
     Dosage: IA3+7 + MIDOSTAURIN AND HIDAC + MIDOSTAURIN
     Route: 065
  6. CYTARABINE [Concomitant]
     Active Substance: CYTARABINE
     Indication: Product used for unknown indication
     Dosage: HIDAC + MIDOSTAURIN
     Route: 065

REACTIONS (2)
  - Graft versus host disease in skin [Unknown]
  - Platelet count decreased [Unknown]
